FAERS Safety Report 19268321 (Version 1)
Quarter: 2021Q2

REPORT INFORMATION
  Report Type: Spontaneous
  Country: US (occurrence: US)
  Receive Date: 20210517
  Receipt Date: 20210517
  Transmission Date: 20210717
  Serious: Yes (Hospitalization)
  Sender: FDA-Public Use
  Company Number: None

PATIENT
  Age: 54 Year
  Sex: Female

DRUGS (11)
  1. SYNTHROID [Concomitant]
     Active Substance: LEVOTHYROXINE SODIUM
  2. BENLYSTA [Suspect]
     Active Substance: BELIMUMAB
     Indication: SYSTEMIC LUPUS ERYTHEMATOSUS
     Route: 058
     Dates: start: 20191221
  3. MUPIROCIN. [Concomitant]
     Active Substance: MUPIROCIN
  4. TIZANIDINE. [Concomitant]
     Active Substance: TIZANIDINE
  5. TRIAMCINOLON [Concomitant]
  6. MORPHINE [Concomitant]
     Active Substance: MORPHINE
  7. AMITIZA [Concomitant]
     Active Substance: LUBIPROSTONE
  8. AMITRIOPTYLIN [Concomitant]
  9. UREA. [Concomitant]
     Active Substance: UREA
  10. MOBIC [Concomitant]
     Active Substance: MELOXICAM
  11. PANTOPRAZOLE [Concomitant]
     Active Substance: PANTOPRAZOLE

REACTIONS (4)
  - Condition aggravated [None]
  - Blood iron decreased [None]
  - Pulmonary thrombosis [None]
  - Inappropriate schedule of product administration [None]
